FAERS Safety Report 17926440 (Version 1)
Quarter: 2020Q2

REPORT INFORMATION
  Report Type: Spontaneous
  Country: US (occurrence: US)
  Receive Date: 20200622
  Receipt Date: 20200622
  Transmission Date: 20200714
  Serious: No
  Sender: FDA-Public Use
  Company Number: US-PFIZER INC-2020239572

PATIENT
  Age: 59 Year
  Sex: Female
  Weight: 67.59 kg

DRUGS (4)
  1. PLAQUENIL [Concomitant]
     Active Substance: HYDROXYCHLOROQUINE SULFATE
     Indication: IMMUNOSUPPRESSANT DRUG THERAPY
     Dosage: UNK (CLAMPS DOWN TO ALLEVIATE THE SYMPTOMS)
  2. HYDROXYCHLOROQUINE [Concomitant]
     Active Substance: HYDROXYCHLOROQUINE
     Indication: IMMUNOSUPPRESSANT DRUG THERAPY
     Dosage: 400 MG, DAILY (200MG IN THE MORNING AND 200MG IN THE EVENING)
     Route: 048
  3. SERTRALINE HCL [Suspect]
     Active Substance: SERTRALINE HYDROCHLORIDE
     Indication: SJOGREN^S SYNDROME
     Dosage: 100 MG, 1X/DAY (100MG ONCE A DAY IN THE MORNING)
  4. PILOCARPINE. [Concomitant]
     Active Substance: PILOCARPINE
     Indication: SJOGREN^S SYNDROME
     Dosage: 15 MG, AS NEEDED (7.5MG AT BEDTIME/IF THE SYMPTOMS WAKE HER UP, TAKE ANOTHER 7.5MG)
     Route: 048

REACTIONS (8)
  - Nausea [Unknown]
  - Product use in unapproved indication [Unknown]
  - Gastrointestinal pain [Unknown]
  - Abdominal distension [Unknown]
  - Constipation [Unknown]
  - Headache [Unknown]
  - Reaction to excipient [Unknown]
  - Off label use [Unknown]
